FAERS Safety Report 8872749 (Version 3)
Quarter: 2012Q4

REPORT INFORMATION
  Report Type: Report from Study
  Country: FR (occurrence: FR)
  Receive Date: 20121030
  Receipt Date: 20121120
  Transmission Date: 20130627
  Serious: Yes (Hospitalization)
  Sender: FDA-Public Use
  Company Number: FR-ROCHE-1149562

PATIENT
  Sex: Male
  Weight: 50 kg

DRUGS (4)
  1. MYCOPHENOLATE MOFETIL [Suspect]
     Indication: RENAL TRANSPLANT
     Route: 048
     Dates: start: 20120711
  2. CERTICAN [Suspect]
     Indication: RENAL TRANSPLANT
     Route: 048
     Dates: start: 20120827, end: 20121024
  3. SOLUPRED (FRANCE) [Suspect]
     Indication: RENAL TRANSPLANT
     Route: 048
     Dates: start: 20120712, end: 20121023
  4. PROGRAF [Concomitant]
     Route: 048
     Dates: start: 20121023

REACTIONS (1)
  - Transplant rejection [Recovered/Resolved]
